FAERS Safety Report 15496953 (Version 2)
Quarter: 2018Q4

REPORT INFORMATION
  Report Type: Spontaneous
  Country: US (occurrence: US)
  Receive Date: 20181015
  Receipt Date: 20181016
  Transmission Date: 20190205
  Serious: No
  Sender: FDA-Public Use
  Company Number: US-AMGEN-USASP2018141421

PATIENT
  Age: 77 Year
  Sex: Female

DRUGS (1)
  1. PROLIA [Suspect]
     Active Substance: DENOSUMAB
     Indication: OSTEOPOROSIS POSTMENOPAUSAL
     Dosage: UNK
     Route: 065
     Dates: start: 20181001

REACTIONS (6)
  - Fatigue [Unknown]
  - Headache [Unknown]
  - Back pain [Not Recovered/Not Resolved]
  - Vomiting [Unknown]
  - Gait disturbance [Unknown]
  - Nausea [Unknown]

NARRATIVE: CASE EVENT DATE: 201810
